FAERS Safety Report 18542964 (Version 1)
Quarter: 2020Q4

REPORT INFORMATION
  Report Type: Spontaneous
  Country: DE (occurrence: DE)
  Receive Date: 20201124
  Receipt Date: 20201124
  Transmission Date: 20210114
  Serious: Yes (Death, Life-Threatening, Hospitalization, Other)
  Sender: FDA-Public Use
  Company Number: DE-MYLANLABS-2020M1094612

PATIENT
  Age: 79 Year
  Sex: Female
  Weight: 71 kg

DRUGS (48)
  1. PREDNISOLONE. [Suspect]
     Active Substance: PREDNISOLONE
     Indication: PRODUCT USED FOR UNKNOWN INDICATION
     Dosage: UNK
     Route: 065
  2. DIOVAN [Suspect]
     Active Substance: VALSARTAN
     Dosage: 2X 80, QD (MORNING)
     Route: 065
     Dates: start: 20130215, end: 201310
  3. DIOVAN [Suspect]
     Active Substance: VALSARTAN
     Dosage: UNK UNK, 1/2 X 160 MG QD (EVENING)
     Route: 065
     Dates: start: 201302
  4. DIOVAN [Suspect]
     Active Substance: VALSARTAN
     Dosage: UNK
     Route: 065
     Dates: start: 2013, end: 2013
  5. AMLODIPIN HEXAL                    /00972401/ [Suspect]
     Active Substance: AMLODIPINE BESYLATE
     Indication: PRODUCT USED FOR UNKNOWN INDICATION
     Dosage: 5 MG, UNK
     Route: 065
     Dates: start: 2016, end: 2017
  6. L-THYROX HEXAL [Suspect]
     Active Substance: LEVOTHYROXINE SODIUM
     Indication: PRODUCT USED FOR UNKNOWN INDICATION
     Dosage: 1.25 TABLETS OF 100 ?G, QD (8 AM)
     Route: 048
     Dates: start: 20180524, end: 20180612
  7. VALSARTAN HEXAL [Suspect]
     Active Substance: VALSARTAN
     Indication: PRODUCT USED FOR UNKNOWN INDICATION
     Dosage: UNK
     Route: 065
     Dates: start: 2014
  8. VALSARTAN DURA [Concomitant]
     Active Substance: VALSARTAN
     Indication: PRODUCT USED FOR UNKNOWN INDICATION
     Dosage: 160 MG, UNK
     Route: 065
     Dates: start: 201702
  9. EUTHYROX [Concomitant]
     Active Substance: LEVOTHYROXINE SODIUM
     Indication: PRODUCT USED FOR UNKNOWN INDICATION
     Dosage: 125, QD (MORNING)
     Route: 065
  10. PARACETAMOL 1 A PHARMA [Concomitant]
     Active Substance: ACETAMINOPHEN
     Indication: PRODUCT USED FOR UNKNOWN INDICATION
     Dosage: 1000 MG, UNK
     Route: 065
     Dates: start: 201903
  11. TAVOR (LORAZEPAM) [Concomitant]
     Active Substance: LORAZEPAM
     Indication: PRODUCT USED FOR UNKNOWN INDICATION
     Dosage: 1.0, UNK
     Route: 065
     Dates: start: 201902
  12. IBUPROFEN. [Concomitant]
     Active Substance: IBUPROFEN
     Indication: PRODUCT USED FOR UNKNOWN INDICATION
     Dosage: 400, (2X DAILY (MORNING AND EVENING)
     Route: 065
  13. VALSARTAN. [Suspect]
     Active Substance: VALSARTAN
     Indication: PRODUCT USED FOR UNKNOWN INDICATION
     Dosage: 160 MG, BID
     Route: 065
     Dates: start: 2005
  14. DIOVAN [Suspect]
     Active Substance: VALSARTAN
     Indication: PRODUCT USED FOR UNKNOWN INDICATION
     Dosage: 1X 160, BID (IN THE MORNING AND EVENING)
     Route: 065
     Dates: start: 201310
  15. BISOPROLOL PLUS 1 A PHARMA [Suspect]
     Active Substance: BISOPROLOL FUMARATE\HYDROCHLOROTHIAZIDE
     Indication: PRODUCT USED FOR UNKNOWN INDICATION
     Dosage: UNK
     Route: 065
     Dates: start: 2014, end: 2018
  16. BISOPROLOL-RATIOPHARM [Interacting]
     Active Substance: BISOPROLOL
     Indication: PRODUCT USED FOR UNKNOWN INDICATION
     Dosage: 5 MG, QD (ONGOING AT DISCHARGE FROM REHABILITATION)
     Route: 048
     Dates: start: 20180524
  17. L THYROXIN HENNING [Concomitant]
     Active Substance: LEVOTHYROXINE SODIUM
     Dosage: 125, UNK
     Route: 065
     Dates: start: 2016
  18. MIDAZOLAM. [Concomitant]
     Active Substance: MIDAZOLAM
     Indication: PRODUCT USED FOR UNKNOWN INDICATION
     Dosage: 5 MILLIGRAM PER MILLILITRE
     Route: 065
     Dates: start: 201903
  19. PANTOPRAZOL AL [Concomitant]
     Active Substance: PANTOPRAZOLE SODIUM
     Indication: PRODUCT USED FOR UNKNOWN INDICATION
     Dosage: 40, QD (IN THE MORNING)
     Route: 065
  20. HALOPERIDOL NEURAXPHARM [Concomitant]
     Active Substance: HALOPERIDOL
     Indication: PRODUCT USED FOR UNKNOWN INDICATION
     Dosage: 30 MILLILITER
     Route: 065
     Dates: start: 201902
  21. HCT HEXAL [Concomitant]
     Active Substance: HYDROCHLOROTHIAZIDE
     Indication: PRODUCT USED FOR UNKNOWN INDICATION
     Dosage: ? TABLET OF 25 MG, QD (8 A.M.)
     Route: 048
     Dates: start: 20180524, end: 20180524
  22. VALSARTAN. [Suspect]
     Active Substance: VALSARTAN
     Dosage: 80 MG, BID
     Route: 065
     Dates: start: 2012
  23. DIOVAN [Suspect]
     Active Substance: VALSARTAN
     Dosage: UNK
     Route: 065
     Dates: start: 2011, end: 2013
  24. DIOVAN [Suspect]
     Active Substance: VALSARTAN
     Indication: PRODUCT USED FOR UNKNOWN INDICATION
     Dosage: 80, BID (IN THE MORNING AND IN THE EVENING)
     Route: 065
     Dates: start: 201001, end: 201302
  25. AMLODIPIN HEXAL                    /00972401/ [Suspect]
     Active Substance: AMLODIPINE BESYLATE
     Dosage: 5 MG, BID
     Route: 048
     Dates: start: 20180523, end: 20180612
  26. AMLODIPIN 1 A PHARMA [Suspect]
     Active Substance: AMLODIPINE BESYLATE
     Indication: PRODUCT USED FOR UNKNOWN INDICATION
     Dosage: 5 MG, BID (ONCE IN THE MORNING AND ONCE IN THE EVENING)
     Route: 065
  27. FENTANYL CT [Concomitant]
     Indication: PRODUCT USED FOR UNKNOWN INDICATION
     Dosage: 12 ?G/H, UNK
     Route: 065
     Dates: start: 201903
  28. BISOPROLOL/HYDROCHLOROTHIAZIDE [Suspect]
     Active Substance: BISOPROLOL FUMARATE\HYDROCHLOROTHIAZIDE
     Indication: PRODUCT USED FOR UNKNOWN INDICATION
     Dosage: ? AN UNIT OF 10/25, QD (IN THE MORNING)
     Route: 065
     Dates: start: 200903
  29. DIOVAN [Suspect]
     Active Substance: VALSARTAN
     Dosage: 160 MG, QD (MORNING)
     Route: 065
     Dates: start: 201302
  30. VALSARTAN 1A PHARMA [Suspect]
     Active Substance: VALSARTAN
     Indication: PRODUCT USED FOR UNKNOWN INDICATION
     Dosage: 160 MG, BID
     Route: 065
     Dates: start: 200502
  31. FERRO-SANOL DUODENAL [Concomitant]
     Active Substance: FERROUS GLYCINE SULFATE
     Indication: PRODUCT USED FOR UNKNOWN INDICATION
     Dosage: 1 DOSAGE FORM, QD
     Route: 065
  32. HYDROMORPHONE [Concomitant]
     Active Substance: HYDROMORPHONE
     Indication: PRODUCT USED FOR UNKNOWN INDICATION
     Dosage: 2 MILLIGRAM
     Route: 065
     Dates: start: 201902
  33. FUROSEMID                          /00032601/ [Concomitant]
     Active Substance: FUROSEMIDE
     Indication: PRODUCT USED FOR UNKNOWN INDICATION
     Dosage: 40 MG, BID
     Route: 065
     Dates: start: 201903
  34. L-THYROX HEXAL [Suspect]
     Active Substance: LEVOTHYROXINE SODIUM
     Dosage: 125, UNK
     Route: 065
     Dates: start: 2016
  35. DIGIMERCK [Concomitant]
     Active Substance: DIGITOXIN
     Indication: PRODUCT USED FOR UNKNOWN INDICATION
     Dosage: 0.07, UNK
     Route: 065
     Dates: start: 201901
  36. L THYROXIN HENNING [Concomitant]
     Active Substance: LEVOTHYROXINE SODIUM
     Indication: PRODUCT USED FOR UNKNOWN INDICATION
     Dosage: 125 UNK, QD
     Route: 065
     Dates: start: 199003, end: 2018
  37. VALSARTAN DURA [Suspect]
     Active Substance: VALSARTAN
     Indication: PRODUCT USED FOR UNKNOWN INDICATION
     Dosage: UNK
     Route: 065
     Dates: start: 2017, end: 2018
  38. VALSARTAN. [Suspect]
     Active Substance: VALSARTAN
     Dosage: 160 MG, BID (ONCE IN THE MORNING, ONCE IN THE EVENING)
     Route: 065
     Dates: start: 201005
  39. DIOVAN [Suspect]
     Active Substance: VALSARTAN
     Dosage: UNK UNK, 1/2 X 160 MG QD (EVENING)QD
     Route: 065
     Dates: start: 20130215, end: 201310
  40. VALSARTAN 1A PHARMA [Suspect]
     Active Substance: VALSARTAN
     Dosage: 160 MG
     Route: 065
     Dates: start: 201312, end: 2017
  41. VALSARTAN HEXAL COMP [Suspect]
     Active Substance: HYDROCHLOROTHIAZIDE\VALSARTAN
     Indication: PRODUCT USED FOR UNKNOWN INDICATION
     Dosage: UNK
     Route: 065
     Dates: start: 2013
  42. L-THYROX HEXAL [Suspect]
     Active Substance: LEVOTHYROXINE SODIUM
     Dosage: 125 UNK, QD
     Route: 065
     Dates: start: 199003, end: 2018
  43. PANTOPRAZOLE [Concomitant]
     Active Substance: PANTOPRAZOLE
     Indication: PRODUCT USED FOR UNKNOWN INDICATION
     Dosage: 40 MILLIGRAM
     Route: 065
     Dates: start: 201901
  44. BISOPROLOL COMP [Concomitant]
     Active Substance: BISOPROLOL FUMARATE\HYDROCHLOROTHIAZIDE
     Indication: PRODUCT USED FOR UNKNOWN INDICATION
     Dosage: ?X 10/25, QD (MORNING)
     Route: 065
     Dates: end: 201302
  45. VALSARTAN HEXAL [Suspect]
     Active Substance: VALSARTAN
     Indication: PRODUCT USED FOR UNKNOWN INDICATION
     Dosage: ? A TABLET OF 320 MG, BID (8.00 AM TO 6 PM)
     Route: 048
     Dates: start: 20180523, end: 20180612
  46. L-THYROX HEXAL [Suspect]
     Active Substance: LEVOTHYROXINE SODIUM
     Indication: PRODUCT USED FOR UNKNOWN INDICATION
     Dosage: UNK
     Route: 065
     Dates: start: 2014, end: 2016
  47. MOMETASONE [Concomitant]
     Active Substance: MOMETASONE
     Indication: PRODUCT USED FOR UNKNOWN INDICATION
     Dosage: 1 MILLIGRAM PER GRAM
     Route: 065
  48. MACROGOL ABZ BALANCE [Concomitant]
     Active Substance: POLYETHYLENE GLYCOL 3350\POTASSIUM CHLORIDE\SODIUM BICARBONATE\SODIUM CHLORIDE
     Indication: PRODUCT USED FOR UNKNOWN INDICATION
     Dosage: UNK
     Route: 065
     Dates: start: 201902

REACTIONS (87)
  - Aphasia [Recovering/Resolving]
  - Chronic kidney disease [Unknown]
  - Basal cell carcinoma [Recovered/Resolved]
  - Atrial fibrillation [Unknown]
  - Urinary incontinence [Not Recovered/Not Resolved]
  - Drug ineffective [Unknown]
  - Visual impairment [Unknown]
  - Fibroma [Unknown]
  - Gastroenteritis [Unknown]
  - Tinnitus [Unknown]
  - Nocturia [Unknown]
  - Adenoma benign [Recovered/Resolved]
  - Joint swelling [Unknown]
  - Oedema mucosal [Unknown]
  - Coordination abnormal [Recovering/Resolving]
  - Metastases to central nervous system [Unknown]
  - Dyspnoea [Unknown]
  - Left ventricular hypertrophy [Unknown]
  - Rash pustular [Unknown]
  - Productive cough [Unknown]
  - Abscess [Unknown]
  - Dyschezia [Unknown]
  - Hypersensitivity [Unknown]
  - Fatigue [Unknown]
  - Diarrhoea [Unknown]
  - Hypokalaemia [Unknown]
  - Loss of consciousness [Unknown]
  - Cardiac failure [Unknown]
  - Myocardial ischaemia [Unknown]
  - Cataract [Unknown]
  - Dysuria [Recovered/Resolved]
  - Aphthous ulcer [Unknown]
  - Ischaemia [Unknown]
  - Ventricular extrasystoles [Unknown]
  - Haemorrhoids [Unknown]
  - Dermatosis [Unknown]
  - Cognitive disorder [Recovering/Resolving]
  - Erysipelas [Recovering/Resolving]
  - Weight decreased [Unknown]
  - Seborrhoeic keratosis [Unknown]
  - Inflammation [Unknown]
  - Hypertension [Unknown]
  - Anal incontinence [Not Recovered/Not Resolved]
  - Anaemia [Unknown]
  - Blood glucose abnormal [Unknown]
  - Cerumen impaction [Unknown]
  - Osteoarthritis [Unknown]
  - Confusional state [Unknown]
  - Renal neoplasm [Recovered/Resolved]
  - Asthenia [Unknown]
  - Ventricular tachycardia [Unknown]
  - Bradycardia [Unknown]
  - Pleural effusion [Recovered/Resolved]
  - Oedema peripheral [Recovering/Resolving]
  - Urinary tract infection [Recovered/Resolved]
  - Iron deficiency [Unknown]
  - Anal prolapse [Unknown]
  - Tachycardia [Unknown]
  - Tendon rupture [Unknown]
  - Memory impairment [Recovering/Resolving]
  - Diabetes mellitus [Unknown]
  - Hypothyroidism [Unknown]
  - Renal cyst [Unknown]
  - Rash [Unknown]
  - Weight increased [Recovering/Resolving]
  - Varicose vein [Unknown]
  - Melanocytic naevus [Unknown]
  - Death [Fatal]
  - Renal cell carcinoma [Not Recovered/Not Resolved]
  - Brain oedema [Unknown]
  - Functional gastrointestinal disorder [Recovered/Resolved]
  - Insomnia [Unknown]
  - Drug intolerance [Unknown]
  - Colitis [Unknown]
  - General physical health deterioration [Recovering/Resolving]
  - Vomiting [Unknown]
  - Abdominal pain [Unknown]
  - Gait disturbance [Unknown]
  - Dizziness [Unknown]
  - Erythema induratum [Unknown]
  - Erythema [Recovering/Resolving]
  - Arrhythmia [Unknown]
  - Urinary retention [Unknown]
  - Nephrogenic anaemia [Unknown]
  - Abdominal distension [Unknown]
  - Arthralgia [Recovering/Resolving]
  - Pruritus [Unknown]

NARRATIVE: CASE EVENT DATE: 2007
